FAERS Safety Report 24920522 (Version 1)
Quarter: 2025Q1

REPORT INFORMATION
  Report Type: Spontaneous
  Country: NL (occurrence: NL)
  Receive Date: 20250204
  Receipt Date: 20250204
  Transmission Date: 20250409
  Serious: No
  Sender: EXELIXIS
  Company Number: NL-EXELIXIS-CABO-24074111

PATIENT
  Age: 56 Year
  Sex: Male
  Weight: 77 kg

DRUGS (8)
  1. CABOMETYX [Suspect]
     Active Substance: CABOZANTINIB S-MALATE
     Indication: Renal cancer
     Dosage: 60 MG, QD
     Route: 065
     Dates: start: 20230902
  2. OXYCODONE [Concomitant]
     Active Substance: OXYCODONE
  3. GEMFIBROZIL [Concomitant]
     Active Substance: GEMFIBROZIL
  4. LOPERAMIDE [Concomitant]
     Active Substance: LOPERAMIDE
  5. HYDROXOCOBALAMIN [Concomitant]
     Active Substance: HYDROXOCOBALAMIN
  6. OXAZEPAM [Concomitant]
     Active Substance: OXAZEPAM
  7. AMLODIPINE [Concomitant]
     Active Substance: AMLODIPINE BESYLATE
  8. OMEPRAZOLE [Concomitant]
     Active Substance: OMEPRAZOLE

REACTIONS (1)
  - Phimosis [Recovered/Resolved]
